FAERS Safety Report 7590126-6 (Version None)
Quarter: 2011Q3

REPORT INFORMATION
  Report Type: 
  Country: None (occurrence: None)
  Receive Date: 20110705
  Receipt Date: 20110627
  Transmission Date: 20111222
  Serious: Yes (Other)
  Sender: FDA-Public Use
  Company Number: B0730269A

PATIENT
  Sex: Female

DRUGS (3)
  1. COUMADIN [Concomitant]
  2. LANOXIN [Suspect]
     Dosage: 125MCG PER DAY
     Route: 048
     Dates: start: 20100505, end: 20110504
  3. BISOPROLOL FUMARATE [Suspect]
     Dosage: 2.5MG PER DAY
     Route: 048
     Dates: start: 20100505, end: 20110504

REACTIONS (1)
  - SICK SINUS SYNDROME [None]
